FAERS Safety Report 7488698-5 (Version None)
Quarter: 2011Q2

REPORT INFORMATION
  Report Type: 
  Country: None (occurrence: None)
  Receive Date: 20110518
  Receipt Date: 20110509
  Transmission Date: 20111010
  Serious: Yes (Hospitalization)
  Sender: FDA-Public Use
  Company Number: B0719591A

PATIENT
  Sex: Female

DRUGS (2)
  1. ADEPAL [Concomitant]
     Route: 048
  2. RANITIDINE HCL [Suspect]
     Dosage: 300MG PER DAY
     Route: 048
     Dates: start: 20100801, end: 20110218

REACTIONS (2)
  - BONE MARROW FAILURE [None]
  - BACTERIAL DISEASE CARRIER [None]
